FAERS Safety Report 10371414 (Version 1)
Quarter: 2014Q3

REPORT INFORMATION
  Report Type: Spontaneous
  Country: CA (occurrence: None)
  Receive Date: 20140806
  Receipt Date: 20140806
  Transmission Date: 20150326
  Serious: Yes (Other)
  Sender: FDA-Public Use
  Company Number: BD-2014-0048

PATIENT
  Age: 37 Year

DRUGS (3)
  1. ONDANSETRON. [Suspect]
     Active Substance: ONDANSETRON
     Indication: PROPHYLAXIS OF NAUSEA AND VOMITING
     Dosage: 4 MG, INTRAVENOUS.
  2. METOCLOPRAMIDE (METOCLOPRAMIDE) [Suspect]
     Active Substance: METOCLOPRAMIDE
     Indication: PRODUCT USED FOR UNKNOWN INDICATION
  3. OXYCODONE [Concomitant]
     Active Substance: OXYCODONE

REACTIONS (3)
  - Extrasystoles [None]
  - Electrocardiogram ST segment depression [None]
  - Electrocardiogram T wave inversion [None]
